FAERS Safety Report 9232063 (Version 1)
Quarter: 2013Q2

REPORT INFORMATION
  Report Type: Spontaneous
  Country: US (occurrence: US)
  Receive Date: 20130415
  Receipt Date: 20130415
  Transmission Date: 20140414
  Serious: No
  Sender: FDA-Public Use
  Company Number: US-PFIZER INC-2013114225

PATIENT
  Age: 60 Year
  Sex: Female

DRUGS (5)
  1. LEVOXYL [Suspect]
     Indication: THYROID DISORDER
     Dosage: 50 MG, 1X/DAY
     Route: 048
  2. LEVOXYL [Suspect]
     Indication: GOITRE
  3. AMLODIPINE BESILATE [Suspect]
     Indication: HYPERTENSION
     Dosage: 5 MG, 1X/DAY
  4. LEVOTHYROXINE SODIUM [Suspect]
     Indication: THYROID DISORDER
     Dosage: UNK
  5. LEVOTHYROXINE SODIUM [Suspect]
     Indication: GOITRE

REACTIONS (4)
  - Goitre [Unknown]
  - Disease progression [Unknown]
  - Rash [Unknown]
  - Blood pressure fluctuation [Unknown]
